FAERS Safety Report 9318012 (Version 1)
Quarter: 2013Q2

REPORT INFORMATION
  Report Type: Spontaneous
  Country: US (occurrence: US)
  Receive Date: 20130530
  Receipt Date: 20130530
  Transmission Date: 20140414
  Serious: No
  Sender: FDA-Public Use
  Company Number: US-GLAXOSMITHKLINE-A1000280A

PATIENT
  Age: 58 Year
  Sex: Male

DRUGS (11)
  1. VENTOLIN [Suspect]
     Indication: CHRONIC OBSTRUCTIVE PULMONARY DISEASE
     Dosage: 2PUFF TWICE PER DAY
     Route: 055
  2. ADVAIR [Concomitant]
  3. SPIRIVA [Concomitant]
  4. WELLBUTRIN [Concomitant]
  5. PREDNISONE [Concomitant]
  6. LASIX [Concomitant]
  7. POTASSIUM [Concomitant]
  8. GLYBURIDE [Concomitant]
  9. METFORMIN [Concomitant]
  10. LISINOPRIL [Concomitant]
  11. ALBUTEROL NEBULIZER [Concomitant]

REACTIONS (2)
  - Burning sensation [Recovered/Resolved]
  - Drug administration error [Unknown]
